FAERS Safety Report 7330417-7 (Version None)
Quarter: 2011Q1

REPORT INFORMATION
  Report Type: 
  Country: None (occurrence: None)
  Receive Date: 20110304
  Receipt Date: 20110225
  Transmission Date: 20110831
  Serious: No
  Sender: FDA-Public Use
  Company Number: US-BIOGENIDEC-2011BI002573

PATIENT
  Sex: Female

DRUGS (1)
  1. TYSABRI [Suspect]
     Indication: MULTIPLE SCLEROSIS
     Route: 042
     Dates: start: 20101202

REACTIONS (6)
  - PRURITUS [None]
  - HEADACHE [None]
  - CONSTIPATION [None]
  - INFUSION SITE HAEMATOMA [None]
  - RENAL PAIN [None]
  - OROPHARYNGEAL PAIN [None]
